FAERS Safety Report 17080312 (Version 2)
Quarter: 2019Q4

REPORT INFORMATION
  Report Type: Spontaneous
  Country: US (occurrence: US)
  Receive Date: 20191127
  Receipt Date: 20191129
  Transmission Date: 20200122
  Serious: No
  Sender: FDA-Public Use
  Company Number: US-JNJFOC-20191126916

PATIENT
  Age: 14 Year
  Sex: Female
  Weight: 47.67 kg

DRUGS (1)
  1. NEUTROGENA HEALTHY SKIN FACE BROAD SPECTRUM SPF15 [Suspect]
     Active Substance: AVOBENZONE\OCTISALATE\OCTOCRYLENE\OXYBENZONE
     Indication: PRODUCT USED FOR UNKNOWN INDICATION
     Dosage: A LITTLE BIT/A LITTLE MORE THAN A PEA SIZE, USED IT ONCE
     Route: 061
     Dates: start: 20191113

REACTIONS (3)
  - Application site burn [Not Recovered/Not Resolved]
  - Application site reaction [Not Recovered/Not Resolved]
  - Application site swelling [Not Recovered/Not Resolved]

NARRATIVE: CASE EVENT DATE: 201911
